FAERS Safety Report 8115860-0 (Version None)
Quarter: 2011Q4

REPORT INFORMATION
  Report Type: 
  Country: None (occurrence: None)
  Receive Date: 20111227
  Receipt Date: 20110920
  Transmission Date: 20120403
  Serious: Yes (Other)
  Sender: FDA-Public Use
  Company Number: PHHY2011US30507

PATIENT
  Age: 57 Year
  Sex: Male
  Weight: 77.1 kg

DRUGS (6)
  1. SIMVASTATIN [Concomitant]
  2. JANUVIA [Concomitant]
  3. KLONOPIN [Concomitant]
  4. SERTRALINE HYDROCHLORIDE [Concomitant]
  5. ENABLEX [Concomitant]
  6. GILENYA [Suspect]
     Indication: MULTIPLE SCLEROSIS
     Dosage: 0.5 MG, QD, ORAL
     Route: 048
     Dates: start: 20110406

REACTIONS (8)
  - ASTHENIA [None]
  - DECREASED APPETITE [None]
  - FATIGUE [None]
  - ABDOMINAL PAIN [None]
  - DIARRHOEA [None]
  - MYALGIA [None]
  - NAUSEA [None]
  - BACK PAIN [None]
